FAERS Safety Report 15277735 (Version 1)
Quarter: 2018Q3

REPORT INFORMATION
  Report Type: Spontaneous
  Country: FR (occurrence: FR)
  Receive Date: 20180814
  Receipt Date: 20180814
  Transmission Date: 20181010
  Serious: Yes (Other)
  Sender: FDA-Public Use
  Company Number: FR-TEVA-2018-FR-939251

PATIENT
  Age: 72 Year
  Sex: Male

DRUGS (7)
  1. ZOFENIL [Concomitant]
     Active Substance: ZOFENOPRIL
     Dosage: UNK
     Route: 065
  2. REQUIP [Concomitant]
     Active Substance: ROPINIROLE HYDROCHLORIDE
     Dosage: UNK
     Route: 065
  3. ANDROTARDYL [Concomitant]
     Active Substance: TESTOSTERONE
     Dosage: UNK
     Route: 065
  4. AMOXICILLIN SODIUM, POTASSIUM CLAVULANATE [Concomitant]
     Active Substance: AMOXICILLIN\CLAVULANATE POTASSIUM
     Indication: DIVERTICULITIS
     Dosage: UNK
     Route: 065
     Dates: start: 201801
  5. ESCITALOPRAM [Suspect]
     Active Substance: ESCITALOPRAM OXALATE
     Dosage: UNK
     Route: 065
     Dates: start: 20180128
  6. XARELTO [Suspect]
     Active Substance: RIVAROXABAN
     Indication: DEEP VEIN THROMBOSIS
     Dosage: 20 MG, UNK
     Route: 065
     Dates: start: 20130919
  7. CARBIDOPA AND LEVODOPA [Concomitant]
     Active Substance: CARBIDOPA\LEVODOPA
     Dosage: UNK
     Route: 065

REACTIONS (2)
  - Diverticulitis [Unknown]
  - Lower gastrointestinal haemorrhage [Recovered/Resolved]

NARRATIVE: CASE EVENT DATE: 201801
